FAERS Safety Report 4357679-2 (Version None)
Quarter: 2004Q2

REPORT INFORMATION
  Report Type: 
  Country: None (occurrence: None)
  Receive Date: 20040510
  Receipt Date: 20040426
  Transmission Date: 20050107
  Serious: Yes (Other)
  Sender: FDA-Public Use
  Company Number: 2004207999JP

PATIENT
  Sex: Female

DRUGS (10)
  1. XALATAN [Suspect]
     Dosage: 1 GTT, QD, OPHTHALMIC
     Route: 047
  2. FLUMETHOLON (FLUOROMETHOLONE) [Concomitant]
  3. SANPILO [Concomitant]
  4. DIAMOX [Concomitant]
  5. TRUSOPT [Concomitant]
  6. BETOPTIC [Concomitant]
  7. BETAMETHASONE [Concomitant]
  8. RESCULA (UNOPROSTONE ISOPROPYL ESTER) [Concomitant]
  9. GLYCEOL [Concomitant]
  10. PREDONINE [Concomitant]

REACTIONS (7)
  - BLINDNESS [None]
  - EYE PAIN [None]
  - IRIS ATROPHY [None]
  - LAGOPHTHALMOS [None]
  - PUPILLARY DISORDER [None]
  - RETINAL DETACHMENT [None]
  - UVEITIS [None]
